FAERS Safety Report 6170956-8 (Version None)
Quarter: 2009Q2

REPORT INFORMATION
  Report Type: 
  Country: None (occurrence: None)
  Receive Date: 20090427
  Receipt Date: 20090427
  Transmission Date: 20091009
  Serious: Yes (Hospitalization)
  Sender: FDA-Public Use
  Company Number: None

PATIENT
  Age: 61 Year
  Sex: Male

DRUGS (14)
  1. WARFARIN SODIUM [Suspect]
     Indication: ATRIAL FIBRILLATION
     Dosage: 6MG PO TOTAL
     Dates: start: 20081201
  2. ALBUTEROL/ ATROVENT [Concomitant]
  3. ALPRAZOLAM [Concomitant]
  4. ASCORBIC ACID [Concomitant]
  5. BENADRYL [Concomitant]
  6. BUSPRIONE [Concomitant]
  7. IRON [Concomitant]
  8. LANSOPRAZOLE [Concomitant]
  9. LASIX [Concomitant]
  10. VIT B [Concomitant]
  11. LEVETIRACETAM [Concomitant]
  12. METOPROLOL TARTRATE [Concomitant]
  13. SIMVASTATIN [Concomitant]
  14. SOD. POLYSTYRENE [Concomitant]

REACTIONS (4)
  - BLOOD CREATININE INCREASED [None]
  - BLOOD UREA INCREASED [None]
  - HYPOXIA [None]
  - INTERNATIONAL NORMALISED RATIO INCREASED [None]
